FAERS Safety Report 20916721 (Version 5)
Quarter: 2022Q3

REPORT INFORMATION
  Report Type: Report from Study
  Country: US (occurrence: US)
  Receive Date: 20220605
  Receipt Date: 20220906
  Transmission Date: 20221027
  Serious: Yes (Hospitalization, Other)
  Sender: FDA-Public Use
  Company Number: US-JNJFOC-20210446123

PATIENT
  Age: 65 Year
  Sex: Female

DRUGS (10)
  1. SELEXIPAG [Suspect]
     Active Substance: SELEXIPAG
     Indication: Pulmonary arterial hypertension
     Route: 048
  2. SELEXIPAG [Suspect]
     Active Substance: SELEXIPAG
     Indication: Pulmonary hypertension
     Route: 048
  3. SELEXIPAG [Suspect]
     Active Substance: SELEXIPAG
     Route: 048
     Dates: start: 2020
  4. CRESTOR [Suspect]
     Active Substance: ROSUVASTATIN CALCIUM
     Indication: Blood cholesterol increased
     Dates: start: 202101, end: 2021
  5. INAPSINE [Suspect]
     Active Substance: DROPERIDOL
     Indication: Product used for unknown indication
     Route: 065
  6. LEVAQUIN [Suspect]
     Active Substance: LEVOFLOXACIN
     Indication: Pericardial effusion
     Route: 065
  7. ADCIRCA [Concomitant]
     Active Substance: TADALAFIL
     Indication: Pulmonary arterial hypertension
  8. SIMVASTATIN [Concomitant]
     Active Substance: SIMVASTATIN
     Indication: Blood cholesterol increased
  9. PRAVASTATIN [Concomitant]
     Active Substance: PRAVASTATIN
     Indication: Blood cholesterol
     Dates: start: 2021
  10. LETAIRIS [Concomitant]
     Active Substance: AMBRISENTAN
     Indication: Pulmonary arterial hypertension

REACTIONS (55)
  - Hypersensitivity [Recovered/Resolved]
  - Cardiac failure congestive [Recovering/Resolving]
  - Pericardial effusion [Recovering/Resolving]
  - Foot operation [Not Recovered/Not Resolved]
  - Fluid retention [Not Recovered/Not Resolved]
  - Osteoarthritis [Not Recovered/Not Resolved]
  - Fall [Recovered/Resolved]
  - Joint injury [Not Recovered/Not Resolved]
  - Thyroid disorder [Unknown]
  - Syncope [Recovered/Resolved]
  - Hospitalisation [Not Recovered/Not Resolved]
  - Anaemia [Recovering/Resolving]
  - Blood cholesterol increased [Unknown]
  - Product dose omission issue [Unknown]
  - Headache [Not Recovered/Not Resolved]
  - Balance disorder [Unknown]
  - Dry mouth [Not Recovered/Not Resolved]
  - Myalgia [Recovered/Resolved]
  - Nausea [Recovered/Resolved]
  - Diarrhoea [Recovered/Resolved]
  - Limb discomfort [Not Recovered/Not Resolved]
  - Oedema peripheral [Not Recovered/Not Resolved]
  - Pain in extremity [Not Recovered/Not Resolved]
  - Skin warm [Recovered/Resolved]
  - Arthritis [Not Recovered/Not Resolved]
  - Nerve compression [Not Recovered/Not Resolved]
  - Ligament rupture [Not Recovered/Not Resolved]
  - Meniscus injury [Unknown]
  - Joint effusion [Not Recovered/Not Resolved]
  - Insomnia [Recovered/Resolved]
  - Agitation [Recovered/Resolved]
  - Emotional disorder [Recovered/Resolved]
  - Crying [Recovered/Resolved]
  - Malaise [Recovered/Resolved]
  - Refusal of treatment by patient [Recovered/Resolved]
  - Irritability [Recovered/Resolved]
  - Chest pain [Not Recovered/Not Resolved]
  - Hypertension [Recovered/Resolved]
  - Dizziness [Recovered/Resolved]
  - Asthenia [Recovered/Resolved]
  - Melanocytic naevus [Not Recovered/Not Resolved]
  - Scratch [Not Recovered/Not Resolved]
  - Pain in jaw [Recovered/Resolved]
  - Vomiting [Recovered/Resolved]
  - Pain in extremity [Recovered/Resolved]
  - Arthralgia [Not Recovered/Not Resolved]
  - Flushing [Recovered/Resolved]
  - Fall [Recovered/Resolved]
  - Fatigue [Not Recovered/Not Resolved]
  - Blood potassium decreased [Not Recovered/Not Resolved]
  - Blood iron decreased [Not Recovered/Not Resolved]
  - Migraine [Not Recovered/Not Resolved]
  - Chronic obstructive pulmonary disease [Recovering/Resolving]
  - Hip deformity [Not Recovered/Not Resolved]
  - Device breakage [Not Recovered/Not Resolved]

NARRATIVE: CASE EVENT DATE: 20200101
